FAERS Safety Report 8185708-7 (Version None)
Quarter: 2012Q1

REPORT INFORMATION
  Report Type: 
  Country: None (occurrence: None)
  Receive Date: 20120305
  Receipt Date: 20120225
  Transmission Date: 20120608
  Serious: Yes (Hospitalization)
  Sender: FDA-Public Use
  Company Number: BR-ASTRAZENECA-2012SE13807

PATIENT
  Age: 63 Year
  Sex: Male
  Weight: 85 kg

DRUGS (5)
  1. ECATOR [Concomitant]
     Route: 048
  2. ALPRAZOLAM [Concomitant]
     Route: 048
  3. CRESTOR [Suspect]
     Route: 048
  4. BRILINTA [Suspect]
     Indication: MYOCARDIAL INFARCTION
     Route: 048
     Dates: start: 20111201, end: 20120101
  5. CRESTOR [Suspect]
     Indication: HYPERCHOLESTEROLAEMIA
     Route: 048
     Dates: start: 20020101, end: 20111201

REACTIONS (3)
  - DIARRHOEA [None]
  - MALAISE [None]
  - MYOCARDIAL INFARCTION [None]
